FAERS Safety Report 21424410 (Version 2)
Quarter: 2022Q4

REPORT INFORMATION
  Report Type: Report from Study
  Country: US (occurrence: US)
  Receive Date: 20221007
  Receipt Date: 20221018
  Transmission Date: 20230112
  Serious: Yes (Hospitalization)
  Sender: FDA-Public Use
  Company Number: US-MORPHOSYS AG-2022-MOR002177-US

PATIENT
  Age: 80 Year
  Sex: Male

DRUGS (16)
  1. PLAMOTAMAB [Suspect]
     Active Substance: PLAMOTAMAB
     Indication: Diffuse large B-cell lymphoma
     Dosage: 0.8 MILLIGRAM, ONCE WEEKLY
     Route: 042
     Dates: start: 20220503, end: 20220503
  2. PLAMOTAMAB [Suspect]
     Active Substance: PLAMOTAMAB
     Dosage: 2 MILLIGRAM, ONCE WEEKLY
     Route: 042
     Dates: start: 20220510, end: 20220510
  3. PLAMOTAMAB [Suspect]
     Active Substance: PLAMOTAMAB
     Dosage: 20 MILLIGRAM, ONCE WEEKLY
     Route: 042
     Dates: start: 20220517
  4. TAFASITAMAB [Suspect]
     Active Substance: TAFASITAMAB
     Indication: Diffuse large B-cell lymphoma
     Dosage: 12 MILLIGRAM (955.2 MG)
     Route: 042
     Dates: start: 20220425, end: 20220425
  5. TAFASITAMAB [Suspect]
     Active Substance: TAFASITAMAB
     Dosage: 12 MILLIGRAM (955.2 MG)
     Route: 042
     Dates: start: 20220429, end: 20220429
  6. TAFASITAMAB [Suspect]
     Active Substance: TAFASITAMAB
     Dosage: 12 MILLIGRAM (955.2 MG)
     Route: 042
     Dates: start: 20220503
  7. LENALIDOMIDE [Suspect]
     Active Substance: LENALIDOMIDE
     Indication: Diffuse large B-cell lymphoma
     Dosage: 25 MILLIGRAM, QD (DAYS 1 TO 21 PER 28-DAY CYCLE)
     Route: 048
     Dates: start: 20210503, end: 20220718
  8. PANTOPRAZOLE [Concomitant]
     Active Substance: PANTOPRAZOLE
     Indication: Product used for unknown indication
     Dosage: UNK
     Dates: start: 20220402
  9. POTASSIUM CHLORIDE [Concomitant]
     Active Substance: POTASSIUM CHLORIDE
     Indication: Product used for unknown indication
     Dosage: UNK
     Dates: start: 20220511, end: 20220511
  10. SODIUM CHLORIDE [Concomitant]
     Active Substance: SODIUM CHLORIDE
     Indication: Product used for unknown indication
     Dosage: UNK
     Dates: start: 20220425
  11. FUROSEMIDE [Concomitant]
     Active Substance: FUROSEMIDE
     Indication: Product used for unknown indication
     Dosage: UNK
     Dates: start: 20220613, end: 20220718
  12. PREDNISONE [Concomitant]
     Active Substance: PREDNISONE
     Indication: Product used for unknown indication
     Dosage: UNK
     Dates: start: 20220712
  13. PREDNISONE [Concomitant]
     Active Substance: PREDNISONE
     Dosage: 40 MG/DAY 6-8 WEEK TAPER
  14. BACTRIM DS [Concomitant]
     Active Substance: SULFAMETHOXAZOLE\TRIMETHOPRIM
     Indication: Pneumocystis jirovecii pneumonia
     Dosage: UNK
     Dates: start: 20220804
  15. ACETAMINOPHEN [Concomitant]
     Active Substance: ACETAMINOPHEN
     Indication: Premedication
     Dosage: UNK
     Dates: start: 20220809, end: 20220809
  16. CETIRIZINE [Concomitant]
     Active Substance: CETIRIZINE HYDROCHLORIDE
     Indication: Premedication
     Dosage: UNK
     Dates: start: 20220809, end: 20220809

REACTIONS (1)
  - Hypertransaminasaemia [Recovered/Resolved]

NARRATIVE: CASE EVENT DATE: 20220810
